FAERS Safety Report 5235487-8 (Version None)
Quarter: 2007Q1

REPORT INFORMATION
  Report Type: 
  Country: None (occurrence: None)
  Receive Date: 20070208
  Receipt Date: 20070208
  Transmission Date: 20070707
  Serious: Yes (Life-Threatening, Hospitalization)
  Sender: FDA-Public Use
  Company Number: None

PATIENT
  Sex: Female
  Weight: 63.5036 kg

DRUGS (1)
  1. NUVARING [Suspect]
     Indication: CONTRACEPTION
     Dosage: ONE RING  WORN FOR 21 DAYS  VAG
     Route: 067
     Dates: start: 20061203, end: 20070202

REACTIONS (1)
  - DEEP VEIN THROMBOSIS [None]
